FAERS Safety Report 23430320 (Version 1)
Quarter: 2024Q1

REPORT INFORMATION
  Report Type: Spontaneous
  Country: US (occurrence: US)
  Receive Date: 20240123
  Receipt Date: 20240123
  Transmission Date: 20240410
  Serious: No
  Sender: FDA-Public Use
  Company Number: US-OTSUKA-2023_025484

PATIENT
  Age: 86 Year
  Sex: Male

DRUGS (1)
  1. INQOVI [Suspect]
     Active Substance: CEDAZURIDINE\DECITABINE
     Indication: Myelodysplastic syndrome
     Dosage: 135 MG (35 MG DECITABINE AND 100 MG CEDAZURIDINE)
     Route: 065

REACTIONS (3)
  - Therapy interrupted [Unknown]
  - Product blister packaging issue [Unknown]
  - Product physical issue [Unknown]

NARRATIVE: CASE EVENT DATE: 20230927
